FAERS Safety Report 8577481-5 (Version None)
Quarter: 2012Q3

REPORT INFORMATION
  Report Type: 
  Country: None (occurrence: None)
  Receive Date: 20120807
  Receipt Date: 20100711
  Transmission Date: 20120928
  Serious: Yes (Other)
  Sender: FDA-Public Use
  Company Number: CO-PFIZER INC-2012188771

PATIENT
  Age: 57 Year
  Sex: Female

DRUGS (3)
  1. LIPITOR [Suspect]
     Indication: DYSLIPIDAEMIA
     Dosage: 10 MG, 1X/DAY
  2. AMLODIPINE [Concomitant]
     Dosage: 5 MG, 1X/DAY
  3. HYDROCHLOROTHIAZIDE [Concomitant]
     Dosage: 12.5 MG, 1X/DAY

REACTIONS (2)
  - ACUTE MYOCARDIAL INFARCTION [None]
  - OBESITY [None]
